FAERS Safety Report 6982178-9 (Version None)
Quarter: 2010Q3

REPORT INFORMATION
  Report Type: 
  Country: None (occurrence: None)
  Receive Date: 20100914
  Receipt Date: 20091207
  Transmission Date: 20110219
  Serious: No
  Sender: FDA-Public Use
  Company Number: US-PFIZER INC-2009308068

PATIENT
  Sex: Female
  Weight: 70.8 kg

DRUGS (12)
  1. LYRICA [Suspect]
     Indication: NEURALGIA
     Dosage: 75 MG, 1X/DAY
     Route: 048
     Dates: start: 20091116
  2. TYLOX [Suspect]
     Dosage: UNK
     Route: 048
     Dates: start: 20090301, end: 20091201
  3. PREVACID [Concomitant]
     Dosage: UNK
  4. LEVOTHYROXINE [Concomitant]
     Dosage: UNK
  5. CARISOPRODOL [Concomitant]
     Dosage: UNK
  6. MULTI-VITAMINS [Concomitant]
     Dosage: UNK
  7. VITAMIN D [Concomitant]
     Dosage: UNK
  8. CALCIUM [Concomitant]
     Dosage: UNK
  9. VITAMIN B6 [Concomitant]
     Dosage: UNK
  10. VITAMIN E [Concomitant]
     Dosage: UNK
  11. B50 [Concomitant]
     Dosage: UNK
  12. VITAMIN B-12 [Concomitant]
     Dosage: UNK

REACTIONS (3)
  - ABDOMINAL DISTENSION [None]
  - CONSTIPATION [None]
  - FEELING ABNORMAL [None]
